FAERS Safety Report 6813755-3 (Version None)
Quarter: 2010Q3

REPORT INFORMATION
  Report Type: 
  Country: None (occurrence: None)
  Receive Date: 20100701
  Receipt Date: 20100623
  Transmission Date: 20110219
  Serious: Yes (Hospitalization, Other)
  Sender: FDA-Public Use
  Company Number: US-AMGEN-KDL420284

PATIENT
  Sex: Male

DRUGS (1)
  1. ENBREL [Suspect]
     Indication: RHEUMATOID ARTHRITIS
     Route: 058
     Dates: start: 20080122

REACTIONS (15)
  - ABDOMINAL PAIN UPPER [None]
  - CHEST PAIN [None]
  - CHOLELITHIASIS [None]
  - DEPRESSION [None]
  - DIARRHOEA [None]
  - EMPHYSEMA [None]
  - FEAR OF CROWDED PLACES [None]
  - HYPERTENSION [None]
  - INJECTION SITE PAIN [None]
  - NEPHROLITHIASIS [None]
  - PALLOR [None]
  - PANIC ATTACK [None]
  - PULMONARY MASS [None]
  - VASCULAR ANOMALY [None]
  - WEIGHT INCREASED [None]
